FAERS Safety Report 14418457 (Version 2)
Quarter: 2018Q1

REPORT INFORMATION
  Report Type: Other
  Country: US (occurrence: US)
  Receive Date: 20180122
  Receipt Date: 20180205
  Transmission Date: 20180509
  Serious: Yes (Other)
  Sender: FDA-Public Use
  Company Number: US-INTERCEPT-PMOCA2017001517

PATIENT

DRUGS (2)
  1. ACTIGALL [Concomitant]
     Active Substance: URSODIOL
  2. OCALIVA [Suspect]
     Active Substance: OBETICHOLIC ACID
     Indication: PRIMARY BILIARY CHOLANGITIS
     Dosage: 5 MG, QD
     Route: 048
     Dates: start: 20171017

REACTIONS (10)
  - Fatigue [Not Recovered/Not Resolved]
  - Ocular icterus [Unknown]
  - Malaise [Unknown]
  - Palmar erythema [Unknown]
  - Pruritus [Not Recovered/Not Resolved]
  - Hepatomegaly [Unknown]
  - Arthralgia [Not Recovered/Not Resolved]
  - Pain [Unknown]
  - Spider naevus [Unknown]
  - Hypothyroidism [Unknown]

NARRATIVE: CASE EVENT DATE: 201710
